FAERS Safety Report 9038282 (Version 1)
Quarter: 2013Q1

REPORT INFORMATION
  Report Type: Spontaneous
  Country: US (occurrence: US)
  Receive Date: 20130129
  Receipt Date: 20130129
  Transmission Date: 20140127
  Serious: Yes (Other)
  Sender: FDA-Public Use
  Company Number: US-ROCHE-1037753

PATIENT
  Sex: Female
  Weight: 52.21 kg

DRUGS (2)
  1. ACCUTANE [Suspect]
     Indication: ACNE CYSTIC
     Dosage: FOR 16 WEEKS
     Route: 065
     Dates: start: 1982
  2. ACCUTANE [Suspect]
     Dosage: FOR 20 WEEKS
     Route: 065
     Dates: start: 1984

REACTIONS (4)
  - Crohn^s disease [Unknown]
  - Inflammatory bowel disease [Unknown]
  - Intestinal obstruction [Unknown]
  - Suicidal ideation [Unknown]
